FAERS Safety Report 4635313-1 (Version None)
Quarter: 2005Q2

REPORT INFORMATION
  Report Type: 
  Country: None (occurrence: None)
  Receive Date: 20050414
  Receipt Date: 20050405
  Transmission Date: 20051028
  Serious: Yes (Other)
  Sender: FDA-Public Use
  Company Number: PHBS2005JP04853

PATIENT
  Age: 74 Year
  Sex: Female

DRUGS (5)
  1. DIOVAN [Suspect]
     Indication: HYPERTENSION
     Dosage: 80 MG/DAY
     Route: 048
     Dates: start: 20040601
  2. ALOSENN [Concomitant]
     Dosage: 1 G/DAY
     Route: 048
  3. LENDORM [Concomitant]
     Dosage: 0.25 MG/DAY
     Route: 048
  4. DILTIAZEM HYDROCHLORIDE [Concomitant]
     Dosage: 100 MG/DAY
     Route: 048
  5. TORSEMIDE [Concomitant]
     Dosage: 2 MG/DAY
     Route: 048

REACTIONS (2)
  - CEREBRAL HAEMORRHAGE [None]
  - FEELING ABNORMAL [None]
